FAERS Safety Report 19472205 (Version 2)
Quarter: 2021Q3

REPORT INFORMATION
  Report Type: Report from Study
  Country: US (occurrence: US)
  Receive Date: 20210629
  Receipt Date: 20210917
  Transmission Date: 20211014
  Serious: Yes (Hospitalization, Other)
  Sender: FDA-Public Use
  Company Number: US-TAKEDA-2012BAX020468

PATIENT
  Age: 53 Year
  Sex: Female
  Weight: 64 kg

DRUGS (23)
  1. ALFA 1?ANTITRYPSIN [Suspect]
     Active Substance: .ALPHA.1-PROTEINASE INHIBITOR HUMAN
     Indication: ALPHA-1 ANTITRYPSIN DEFICIENCY
     Dosage: UNK
     Route: 042
  2. ALFA 1?ANTITRYPSIN [Suspect]
     Active Substance: .ALPHA.1-PROTEINASE INHIBITOR HUMAN
     Dosage: 70 MILLIGRAM/KILOGRAM, 1/WEEK
     Route: 042
     Dates: start: 20080729
  3. OMEGA?3 FISH OIL [Concomitant]
     Active Substance: FISH OIL\OMEGA-3 FATTY ACIDS
  4. VITAMIN B COMPLEX [Concomitant]
     Active Substance: CYANOCOBALAMIN\DEXPANTHENOL\NIACINAMIDE\PYRIDOXINE HYDROCHLORIDE\RIBOFLAVIN 5^-PHOSPHATE SODIUM\THIAMINE HYDROCHLORIDE\VITAMIN B COMPLEX
  5. CALCIUM 600 WITH VITAMIN D [Concomitant]
  6. ALFA 1?ANTITRYPSIN [Suspect]
     Active Substance: .ALPHA.1-PROTEINASE INHIBITOR HUMAN
     Dosage: 4328 MILLIGRAM, 1/WEEK
     Route: 042
     Dates: start: 20080729
  7. VENLAFAXINE [Concomitant]
     Active Substance: VENLAFAXINE HYDROCHLORIDE
  8. VITAMIN C [Concomitant]
     Active Substance: ASCORBIC ACID
  9. ALFA 1?ANTITRYPSIN [Suspect]
     Active Substance: .ALPHA.1-PROTEINASE INHIBITOR HUMAN
     Dosage: 70 MILLIGRAM/KILOGRAM, 1/WEEK
     Route: 042
     Dates: start: 20080729
  10. ALFA 1?ANTITRYPSIN [Suspect]
     Active Substance: .ALPHA.1-PROTEINASE INHIBITOR HUMAN
     Dosage: 4328 MILLIGRAM, 1/WEEK
     Route: 042
     Dates: start: 20080729
  11. ALBUTEROL. [Concomitant]
     Active Substance: ALBUTEROL
  12. DIPHENHYDRAMINE. [Concomitant]
     Active Substance: DIPHENHYDRAMINE
  13. INCRUSE ELLIPTA [Concomitant]
     Active Substance: UMECLIDINIUM BROMIDE
  14. VITAMIN D [Concomitant]
     Active Substance: VITAMIN D NOS
  15. NORMAL SALINE [Concomitant]
     Active Substance: SODIUM CHLORIDE
  16. SPIRIVA [Concomitant]
     Active Substance: TIOTROPIUM BROMIDE MONOHYDRATE
  17. PROAIR HFA [Concomitant]
     Active Substance: ALBUTEROL SULFATE
  18. LIDOCAINE. [Concomitant]
     Active Substance: LIDOCAINE
  19. SYNTHROID [Concomitant]
     Active Substance: LEVOTHYROXINE SODIUM
  20. ALFA 1?ANTITRYPSIN [Suspect]
     Active Substance: .ALPHA.1-PROTEINASE INHIBITOR HUMAN
     Indication: ALPHA-1 ANTITRYPSIN DEFICIENCY
     Dosage: UNK
     Route: 042
  21. EPINEPHRINE. [Concomitant]
     Active Substance: EPINEPHRINE
  22. ADVAIR HFA [Concomitant]
     Active Substance: FLUTICASONE PROPIONATE\SALMETEROL XINAFOATE
  23. DAILY MULTIPLE [Concomitant]

REACTIONS (4)
  - Pneumonia [Unknown]
  - Oxygen therapy [Unknown]
  - Pulmonary nocardiosis [Unknown]
  - Retinal detachment [Recovering/Resolving]

NARRATIVE: CASE EVENT DATE: 201205
